FAERS Safety Report 12234558 (Version 2)
Quarter: 2016Q2

REPORT INFORMATION
  Report Type: Report from Study
  Country: US (occurrence: US)
  Receive Date: 20160404
  Receipt Date: 20160419
  Transmission Date: 20160815
  Serious: Yes (Death, Hospitalization, Other)
  Sender: FDA-Public Use
  Company Number: US-BAYER-2016-046533

PATIENT
  Age: 85 Year
  Sex: Male
  Weight: 72.56 kg

DRUGS (20)
  1. ADEMPAS [Suspect]
     Active Substance: RIOCIGUAT
     Indication: PULMONARY ARTERIAL HYPERTENSION
     Dosage: 1 MG, TID
     Route: 048
  2. REMODULIN [Suspect]
     Active Substance: TREPROSTINIL
     Dosage: 1 MG/ML, SOLUTION, INJECT 38 ML AS DIRECTED 36NG/KG/MIN
  3. ALLOPURINOL. [Concomitant]
     Active Substance: ALLOPURINOL
     Dosage: 300 MG, QD
     Route: 048
  4. VITAMIN D [Concomitant]
     Active Substance: CHOLECALCIFEROL
     Dosage: 2000 U, QD
     Route: 048
  5. ADEMPAS [Suspect]
     Active Substance: RIOCIGUAT
     Indication: PULMONARY ARTERIAL HYPERTENSION
     Dosage: 1 MG, TID (LAST SHIPPED: 14-MAR-2016)
     Route: 048
  6. ADCIRCA [Concomitant]
     Active Substance: TADALAFIL
     Dosage: PAST MEDICATION
  7. NU-IRON PLUS [Concomitant]
     Dosage: 150 MG, BID
     Route: 048
  8. ADEMPAS [Suspect]
     Active Substance: RIOCIGUAT
     Indication: PULMONARY ARTERIAL HYPERTENSION
     Dosage: UNK
     Dates: start: 20160218
  9. ATORVASTATIN [Concomitant]
     Active Substance: ATORVASTATIN
     Dosage: 10 MG, QD
     Route: 048
  10. MULTIPLE VITAMINS [Concomitant]
     Active Substance: VITAMINS
     Dosage: 1 DF, QD
     Route: 048
  11. WARFARIN [Concomitant]
     Active Substance: WARFARIN
  12. ADVAIR HFA [Concomitant]
     Active Substance: FLUTICASONE PROPIONATE\SALMETEROL XINAFOATE
     Dosage: 115-21 MCG/ACT
     Route: 055
  13. HYALURONIC ACID [Concomitant]
     Active Substance: HYALURONIC ACID
     Dosage: 20-60 MG CAP, TAKE 2 TABS
     Route: 048
  14. SPIRIVA [Concomitant]
     Active Substance: TIOTROPIUM BROMIDE MONOHYDRATE
     Dosage: 18 MCG CAP, QD
  15. CALCITRIOL. [Concomitant]
     Active Substance: CALCITRIOL
     Dosage: 0.25 MCG CAP
     Route: 048
  16. DIGOXIN. [Concomitant]
     Active Substance: DIGOXIN
     Dosage: 0.125 MG, QD
  17. MELATONIN [Concomitant]
     Active Substance: MELATONIN
     Dosage: 5 MG, QD
     Route: 048
  18. TORSEMIDE. [Concomitant]
     Active Substance: TORSEMIDE
     Dosage: 20-40 MG, PRN
  19. OXYGEN. [Concomitant]
     Active Substance: OXYGEN
     Dosage: 6 LPM AT REST AND WITH ACTIVITY
  20. WARFARIN SODIUM. [Concomitant]
     Active Substance: WARFARIN SODIUM
     Dosage: 5 MG MON/WED/FRI 1 TAB BY MOUTH DAILY
     Route: 048

REACTIONS (12)
  - Abdominal distension [None]
  - Blood pressure decreased [Unknown]
  - Feeling abnormal [Unknown]
  - Weight increased [None]
  - Upper respiratory tract infection [Unknown]
  - Asthenia [Unknown]
  - Pyrexia [Unknown]
  - Decreased appetite [None]
  - Dyspnoea [Unknown]
  - Death [Fatal]
  - Oxygen saturation decreased [Unknown]
  - Peripheral swelling [None]

NARRATIVE: CASE EVENT DATE: 20160325
